FAERS Safety Report 10461545 (Version 4)
Quarter: 2014Q4

REPORT INFORMATION
  Report Type: Not Available
  Country: DE (occurrence: DE)
  Receive Date: 20140918
  Receipt Date: 20141215
  Transmission Date: 20150528
  Serious: Yes (Other)
  Sender: FDA-Public Use
  Company Number: DE-BEH-2014045067

PATIENT
  Age: 58 Year
  Sex: Male

DRUGS (9)
  1. PRIVIGEN [Suspect]
     Active Substance: HUMAN IMMUNOGLOBULIN G
     Dosage: ??-MAY-2014
  2. PRIVIGEN [Suspect]
     Active Substance: HUMAN IMMUNOGLOBULIN G
     Dosage: CUMULATIVE DOSE:  510 G
     Route: 042
     Dates: start: 20140811, end: 20140811
  3. PRIVIGEN [Suspect]
     Active Substance: HUMAN IMMUNOGLOBULIN G
  4. PRIVIGEN [Suspect]
     Active Substance: HUMAN IMMUNOGLOBULIN G
     Indication: CHRONIC INFLAMMATORY DEMYELINATING POLYRADICULONEUROPATHY
     Dosage: ??-JAN-2014
  5. RANITIC 150 MG [Concomitant]
     Dosage: 0-0-0-1
  6. DISALUNIL [Concomitant]
     Active Substance: HYDROCHLOROTHIAZIDE
     Dosage: 1/2-0-0
  7. CANDARSARTAN [Concomitant]
  8. MADOPAR 100/26T [Concomitant]
     Dosage: 0-0-0-1
  9. MADOPAR DEPOT [Concomitant]
     Active Substance: BENSERAZIDE HYDROCHLORIDE\LEVODOPA
     Dosage: 0-0-0-1

REACTIONS (8)
  - Tachyarrhythmia [Recovered/Resolved]
  - Chills [Recovered/Resolved]
  - Skin exfoliation [Unknown]
  - Pyrexia [Recovered/Resolved]
  - Fatigue [Unknown]
  - Drug hypersensitivity [Recovered/Resolved]
  - Malaise [Recovered/Resolved]
  - Drug ineffective [Unknown]

NARRATIVE: CASE EVENT DATE: 201408
